FAERS Safety Report 10248533 (Version 1)
Quarter: 2014Q2

REPORT INFORMATION
  Report Type: Spontaneous
  Country: US (occurrence: US)
  Receive Date: 20140620
  Receipt Date: 20140620
  Transmission Date: 20141212
  Serious: No
  Sender: FDA-Public Use
  Company Number: US-009507513-1406USA006827

PATIENT
  Sex: Female

DRUGS (1)
  1. RAGWITEK [Suspect]
     Indication: HYPERSENSITIVITY
     Route: 060

REACTIONS (1)
  - Headache [Unknown]
